FAERS Safety Report 12755868 (Version 1)
Quarter: 2016Q3

REPORT INFORMATION
  Report Type: Report from Study
  Country: PL (occurrence: PL)
  Receive Date: 20160916
  Receipt Date: 20160916
  Transmission Date: 20161109
  Serious: Yes (Other)
  Sender: FDA-Public Use
  Company Number: PL-TEVA-691699ISR

PATIENT

DRUGS (3)
  1. PERINDOPRIL [Suspect]
     Active Substance: PERINDOPRIL
  2. AMLODIPINE [Suspect]
     Active Substance: AMLODIPINE BESYLATE
  3. INDAPAMIDE. [Suspect]
     Active Substance: INDAPAMIDE

REACTIONS (6)
  - Urticaria [Recovered/Resolved]
  - C-reactive protein increased [Recovered/Resolved]
  - Neutrophilia [Recovered/Resolved]
  - Angioedema [Recovered/Resolved]
  - Leukocytosis [Recovered/Resolved]
  - Lymphopenia [Recovered/Resolved]
